FAERS Safety Report 6836863-X (Version None)
Quarter: 2010Q3

REPORT INFORMATION
  Report Type: 
  Country: None (occurrence: None)
  Receive Date: 20100713
  Receipt Date: 20070501
  Transmission Date: 20110219
  Serious: No
  Sender: FDA-Public Use
  Company Number: US-PFIZER INC-2007035454

PATIENT
  Sex: Male
  Weight: 78.181 kg

DRUGS (5)
  1. CHANTIX [Suspect]
     Indication: SMOKING CESSATION THERAPY
     Dates: start: 20070427
  2. ALL OTHER THERAPEUTIC PRODUCTS [Interacting]
  3. PRIMIDONE [Concomitant]
     Indication: TREMOR
  4. CRESTOR [Concomitant]
  5. ATENOLOL [Concomitant]

REACTIONS (2)
  - DRUG INTERACTION [None]
  - TREMOR [None]
